FAERS Safety Report 6054319-1 (Version None)
Quarter: 2009Q1

REPORT INFORMATION
  Report Type: 
  Country: None (occurrence: None)
  Receive Date: 20090127
  Receipt Date: 20090123
  Transmission Date: 20090719
  Serious: Yes (Death, Hospitalization, Other)
  Sender: FDA-Public Use
  Company Number: JP-ABBOTT-09P-087-0496941-00

PATIENT
  Sex: Female
  Weight: 54 kg

DRUGS (19)
  1. HUMIRA [Suspect]
     Indication: RHEUMATOID ARTHRITIS
     Route: 058
     Dates: start: 20080722, end: 20081226
  2. STEROID [Concomitant]
     Indication: DRUG USE FOR UNKNOWN INDICATION
     Dates: start: 20090104
  3. PREDNISOLONE [Concomitant]
     Indication: RHEUMATOID ARTHRITIS
     Route: 048
     Dates: start: 20080111, end: 20080814
  4. PREDNISOLONE [Concomitant]
     Indication: INTERSTITIAL LUNG DISEASE
     Route: 048
     Dates: start: 20080815, end: 20081001
  5. PREDNISOLONE [Concomitant]
     Route: 048
     Dates: start: 20081002, end: 20081016
  6. PREDNISOLONE [Concomitant]
     Route: 048
     Dates: start: 20081017, end: 20081023
  7. PREDNISOLONE [Concomitant]
     Route: 048
     Dates: start: 20081024, end: 20081106
  8. PREDNISOLONE [Concomitant]
     Route: 048
     Dates: start: 20081107, end: 20081120
  9. PREDNISOLONE [Concomitant]
     Route: 048
     Dates: start: 20081121, end: 20081218
  10. PREDNISOLONE [Concomitant]
     Route: 048
     Dates: start: 20081219, end: 20090108
  11. CYCLOSPORINE [Concomitant]
     Indication: INTERSTITIAL LUNG DISEASE
     Dates: start: 20080707, end: 20080815
  12. WARFARIN POTASSIUM [Concomitant]
     Indication: VENOUS THROMBOSIS LIMB
     Dates: start: 20081110, end: 20090108
  13. LANSOPRAZOLE [Concomitant]
     Indication: PROPHYLAXIS AGAINST GASTROINTESTINAL ULCER
     Dates: start: 20070101, end: 20090108
  14. ALLOPURINOL [Concomitant]
     Indication: HYPERURICAEMIA
     Dates: start: 20070101, end: 20090108
  15. ALLOPURINOL [Concomitant]
     Indication: PROPHYLAXIS
  16. ALFACALCIDOL [Concomitant]
     Indication: OSTEOPOROSIS PROPHYLAXIS
     Dates: start: 20070101, end: 20090108
  17. MAGNESIUM OXIDE [Concomitant]
     Indication: CONSTIPATION
     Dates: start: 20070101, end: 20090108
  18. AMLODIPINE BESILATE [Concomitant]
     Indication: DRUG USE FOR UNKNOWN INDICATION
     Dates: start: 20070101, end: 20090108
  19. SODIUM RISEDRONATE HYDRATE [Concomitant]
     Indication: OSTEOPOROSIS PROPHYLAXIS
     Dates: start: 20080815, end: 20090108

REACTIONS (2)
  - PNEUMOCYSTIS JIROVECI PNEUMONIA [None]
  - RESPIRATORY FAILURE [None]
